FAERS Safety Report 10221857 (Version 1)
Quarter: 2014Q2

REPORT INFORMATION
  Report Type: Spontaneous
  Country: IT (occurrence: IT)
  Receive Date: 20140606
  Receipt Date: 20140606
  Transmission Date: 20141212
  Serious: Yes (Death)
  Sender: FDA-Public Use
  Company Number: IT-BAYER-2014-083314

PATIENT
  Age: 68 Year
  Sex: Male
  Weight: 96 kg

DRUGS (7)
  1. ACETYLSALICYLIC ACID({=100 MG) [Suspect]
     Indication: ANTIPLATELET THERAPY
     Dosage: UNK
  2. ACETYLSALICYLIC ACID({=100 MG) [Interacting]
     Indication: MYOCARDIAL INFARCTION
  3. PRASUGREL [Interacting]
     Indication: ANTIPLATELET THERAPY
     Dosage: UNK
  4. PRASUGREL [Interacting]
     Indication: MYOCARDIAL INFARCTION
  5. WARFARIN [Interacting]
     Indication: ATRIAL FIBRILLATION
  6. WARFARIN [Interacting]
     Indication: VENTRICULAR TACHYCARDIA
  7. ENOXAPARIN [Concomitant]

REACTIONS (4)
  - Gastrointestinal ulcer haemorrhage [Fatal]
  - Rectal haemorrhage [Fatal]
  - Cardiac arrest [Fatal]
  - Potentiating drug interaction [Fatal]
